FAERS Safety Report 21423081 (Version 12)
Quarter: 2023Q1

REPORT INFORMATION
  Report Type: Spontaneous
  Country: US (occurrence: US)
  Receive Date: 20221007
  Receipt Date: 20230308
  Transmission Date: 20230418
  Serious: No
  Sender: FDA-Public Use
  Company Number: US-PFIZER INC-PV202200077965

PATIENT
  Age: 66 Year
  Sex: Female

DRUGS (2)
  1. IBRANCE [Suspect]
     Active Substance: PALBOCICLIB
     Dosage: 125 MG
     Dates: start: 2022
  2. XGEVA [Concomitant]
     Active Substance: DENOSUMAB
     Dosage: UNK

REACTIONS (14)
  - Dizziness [Recovering/Resolving]
  - Fatigue [Not Recovered/Not Resolved]
  - Hot flush [Recovering/Resolving]
  - Lethargy [Unknown]
  - Rash [Recovered/Resolved]
  - Thinking abnormal [Not Recovered/Not Resolved]
  - Full blood count decreased [Unknown]
  - Somnolence [Unknown]
  - Influenza [Recovered/Resolved]
  - White blood cell count decreased [Unknown]
  - Disturbance in attention [Unknown]
  - Blood phosphorus decreased [Unknown]
  - Alopecia [Unknown]
  - Product dose omission issue [Unknown]

NARRATIVE: CASE EVENT DATE: 20220101
